FAERS Safety Report 8877687 (Version 2)
Quarter: 2012Q4

REPORT INFORMATION
  Report Type: 
  Country: MX (occurrence: MX)
  Receive Date: 20121024
  Receipt Date: 20121220
  Transmission Date: 20130627
  Serious: Yes (Hospitalization)
  Sender: FDA-Public Use
  Company Number: PHHY2012MX094443

PATIENT
  Age: 79 Year
  Sex: Male

DRUGS (5)
  1. TEGRETOL [Suspect]
     Indication: DEMENTIA
     Dosage: 1 DF, daily
     Route: 048
     Dates: start: 201208, end: 201211
  2. OMEPRAZOLE [Concomitant]
     Indication: GASTRIC HAEMORRHAGE
     Dosage: 2 DF, daily
     Dates: start: 2003
  3. CIPREX [Concomitant]
     Indication: DEMENTIA
     Dosage: 1.5 DF, daily
     Dates: start: 2006
  4. HALDOL [Concomitant]
     Indication: DEMENTIA
     Dosage: 20 drp, (at night)
     Dates: start: 201111
  5. MICARDIS [Concomitant]
     Indication: BLOOD PRESSURE
     Dosage: 40 mg, daily
     Dates: start: 201211

REACTIONS (7)
  - Throat lesion [Not Recovered/Not Resolved]
  - Eating disorder [Not Recovered/Not Resolved]
  - Communication disorder [Not Recovered/Not Resolved]
  - Faeces discoloured [Recovered/Resolved]
  - Chest pain [Recovered/Resolved]
  - Gastric haemorrhage [Recovered/Resolved]
  - Vomiting [Recovered/Resolved]
